FAERS Safety Report 7604537-3 (Version None)
Quarter: 2011Q3

REPORT INFORMATION
  Report Type: 
  Country: None (occurrence: None)
  Receive Date: 20110712
  Receipt Date: 20110706
  Transmission Date: 20111222
  Serious: Yes (Other)
  Sender: FDA-Public Use
  Company Number: US-ALLERGAN-1109138US

PATIENT
  Age: 56 Year
  Sex: Male

DRUGS (7)
  1. OMEPRAZOLE [Concomitant]
  2. BOTULINUM TOXIN TYPE A [Suspect]
     Dosage: 150 UNITS, SINGLE
     Route: 030
     Dates: start: 20110621, end: 20110621
  3. BOTULINUM TOXIN TYPE A [Suspect]
     Indication: TORTICOLLIS
     Dosage: 150 UNITS, SINGLE
     Route: 030
     Dates: start: 20110621, end: 20110621
  4. BOTULINUM TOXIN TYPE A [Suspect]
  5. ATENOLOL [Concomitant]
  6. OXYCODONE HCL [Concomitant]
  7. BOTULINUM TOXIN TYPE A [Suspect]

REACTIONS (7)
  - CHILLS [None]
  - PAIN IN EXTREMITY [None]
  - DRUG INEFFECTIVE [None]
  - NECK PAIN [None]
  - BACK PAIN [None]
  - MUSCULAR WEAKNESS [None]
  - PYREXIA [None]
